FAERS Safety Report 7462607-7 (Version None)
Quarter: 2011Q2

REPORT INFORMATION
  Report Type: 
  Country: None (occurrence: None)
  Receive Date: 20110506
  Receipt Date: 20110503
  Transmission Date: 20111010
  Serious: Yes (Other)
  Sender: FDA-Public Use
  Company Number: US-AMGEN-USASP2011023062

PATIENT
  Age: 63 Year
  Sex: Female

DRUGS (3)
  1. XELODA [Concomitant]
     Dates: start: 20110321
  2. GEMZAR [Concomitant]
     Dates: start: 20110321
  3. NEUPOGEN [Suspect]
     Indication: NEUTROPENIA
     Dates: start: 20110322

REACTIONS (1)
  - NEUTROPENIA [None]
